FAERS Safety Report 10544602 (Version 2)
Quarter: 2015Q1

REPORT INFORMATION
  Report Type: Spontaneous
  Country: US (occurrence: None)
  Receive Date: 20141020
  Receipt Date: 20150120
  Transmission Date: 20150720
  Serious: No
  Sender: FDA-Public Use
  Company Number: AEGR000564

PATIENT
  Age: 69 Year
  Sex: Female
  Weight: 87.1 kg

DRUGS (11)
  1. TRIAMTERENE HCTZ (HYDROPCHLOROTHIAZIDE, TRIAMTERENE) [Concomitant]
  2. METOPROLOL TARTRATE (METOPROLOL TARTRATE) [Concomitant]
  3. OMEGA 3 6 9 (OMEGA 9 FATTY ACIDS, OMEGA 3-FATTY ACIDS) [Concomitant]
  4. AMLODIPINE BESYLATE. [Concomitant]
     Active Substance: AMLODIPINE BESYLATE
  5. DICLOFENAC POTASSIUM. [Concomitant]
     Active Substance: DICLOFENAC POTASSIUM
  6. JUXTAPID [Suspect]
     Active Substance: LOMITAPIDE MESYLATE
     Indication: TYPE IIA HYPERLIPIDAEMIA
     Route: 048
     Dates: start: 20140619
  7. GABAPENTIN (GABAPENTIN) [Concomitant]
     Active Substance: GABAPENTIN
  8. PANTOPRAZOLE (PANTOPRAZOLE SODIUM SESQUIHTYDRATE) [Concomitant]
  9. VITAMIN E (TOCOPHERYL ACETATE) [Concomitant]
  10. PAROXETINE HCL (PAROXETINE HCL) [Concomitant]
  11. ASPIRIN. [Concomitant]
     Active Substance: ASPIRIN

REACTIONS (6)
  - Nausea [None]
  - Diarrhoea [None]
  - Drug dose omission [None]
  - Vomiting [None]
  - Food intolerance [None]
  - Decreased appetite [None]

NARRATIVE: CASE EVENT DATE: 2014
